FAERS Safety Report 4540345-8 (Version None)
Quarter: 2004Q4

REPORT INFORMATION
  Report Type: 
  Country: None (occurrence: None)
  Receive Date: 20041228
  Receipt Date: 20041228
  Transmission Date: 20050328
  Serious: Yes (Other)
  Sender: FDA-Public Use
  Company Number: None

PATIENT
  Age: 62 Year
  Sex: Male
  Weight: 61.2356 kg

DRUGS (1)
  1. BEXTRA [Suspect]
     Indication: SCIATICA
     Dosage: ONE TABLET DAILY
     Dates: start: 19990708, end: 20020101

REACTIONS (2)
  - FEELING ABNORMAL [None]
  - PAIN [None]
